FAERS Safety Report 5487670-4 (Version None)
Quarter: 2007Q4

REPORT INFORMATION
  Report Type: 
  Country: None (occurrence: None)
  Receive Date: 20071017
  Receipt Date: 20071009
  Transmission Date: 20080405
  Serious: Yes (Other)
  Sender: FDA-Public Use
  Company Number: PHBS2007BE14978

PATIENT
  Age: 51 Year
  Sex: Female

DRUGS (3)
  1. ZOMETA [Suspect]
     Indication: METASTASES TO BONE
     Dates: start: 20050101
  2. RADIOTHERAPY [Concomitant]
  3. ANTINEOPLASTIC AGENTS [Concomitant]
     Indication: BONE NEOPLASM MALIGNANT

REACTIONS (5)
  - ORAL CAVITY FISTULA [None]
  - OSTEONECROSIS [None]
  - PAIN IN JAW [None]
  - PURULENT DISCHARGE [None]
  - TOOTH EXTRACTION [None]
